FAERS Safety Report 5726741-1 (Version None)
Quarter: 2008Q2

REPORT INFORMATION
  Report Type: 
  Country: None (occurrence: None)
  Receive Date: 20080502
  Receipt Date: 20080428
  Transmission Date: 20081010
  Serious: Yes (Life-Threatening, Hospitalization, Other)
  Sender: FDA-Public Use
  Company Number: NO-ABBOTT-06P-122-0335537-00

PATIENT
  Sex: Male
  Weight: 115 kg

DRUGS (2)
  1. REDUCTIL 15MG [Suspect]
     Indication: OBESITY
     Route: 048
     Dates: start: 20060501, end: 20060601
  2. REDUCTIL 15MG [Suspect]
     Route: 048
     Dates: start: 20060501, end: 20060601

REACTIONS (3)
  - DEEP VEIN THROMBOSIS [None]
  - PROTEIN S DEFICIENCY [None]
  - PULMONARY EMBOLISM [None]
